FAERS Safety Report 23601972 (Version 2)
Quarter: 2024Q2

REPORT INFORMATION
  Report Type: Spontaneous
  Country: JP (occurrence: JP)
  Receive Date: 20240306
  Receipt Date: 20240523
  Transmission Date: 20240716
  Serious: Yes (Life-Threatening, Hospitalization)
  Sender: FDA-Public Use
  Company Number: JP-Eisai-202111651_LEN-EC_P_1

PATIENT
  Sex: Female

DRUGS (3)
  1. LENVIMA [Suspect]
     Active Substance: LENVATINIB
     Indication: Endometrial cancer
     Route: 048
     Dates: start: 20220121, end: 20220204
  2. KEYTRUDA [Suspect]
     Active Substance: PEMBROLIZUMAB
     Indication: Endometrial cancer
     Route: 041
     Dates: start: 20220121, end: 20220204
  3. KEYTRUDA [Suspect]
     Active Substance: PEMBROLIZUMAB
     Route: 041
     Dates: start: 20220310, end: 20220421

REACTIONS (10)
  - Hepatic function abnormal [Recovering/Resolving]
  - Cytokine storm [Recovering/Resolving]
  - White blood cell count decreased [Recovering/Resolving]
  - Infection [Recovering/Resolving]
  - C-reactive protein increased [Recovering/Resolving]
  - Renal impairment [Recovering/Resolving]
  - Septic shock [Recovering/Resolving]
  - Pyrexia [Unknown]
  - Platelet count decreased [Recovering/Resolving]
  - Cardiac dysfunction [Unknown]

NARRATIVE: CASE EVENT DATE: 20220101
